FAERS Safety Report 8580410-1 (Version None)
Quarter: 2012Q3

REPORT INFORMATION
  Report Type: 
  Country: None (occurrence: None)
  Receive Date: 20120808
  Receipt Date: 20120806
  Transmission Date: 20120928
  Serious: Yes (Other)
  Sender: FDA-Public Use
  Company Number: GB-PFIZER INC-2012190434

PATIENT
  Age: 67 Year
  Sex: Female

DRUGS (2)
  1. VARENICLINE [Suspect]
     Dosage: 1 MG, 1X/DAY
     Route: 048
     Dates: start: 20111201
  2. VARENICLINE [Suspect]
     Dosage: 1 MG, 2X/DAY
     Dates: start: 20120101, end: 20120301

REACTIONS (5)
  - SUICIDAL IDEATION [None]
  - AGITATION [None]
  - DEPRESSED MOOD [None]
  - DEPRESSION [None]
  - WITHDRAWAL SYNDROME [None]
